FAERS Safety Report 7979050-4 (Version None)
Quarter: 2011Q4

REPORT INFORMATION
  Report Type: 
  Country: None (occurrence: None)
  Receive Date: 20111214
  Receipt Date: 20111208
  Transmission Date: 20120403
  Serious: No
  Sender: FDA-Public Use
  Company Number: US-PFIZER INC-2011301108

PATIENT
  Sex: Male
  Weight: 63.03 kg

DRUGS (4)
  1. MORPHINE SULFATE [Suspect]
     Dosage: UNK
     Dates: end: 20110101
  2. OXYCODONE HYDROCHLORIDE [Suspect]
     Dosage: UNK
  3. XALKORI [Suspect]
     Indication: ANAPLASTIC LYMPHOMA RECEPTOR TYROSINE KINASE ASSAY
     Dosage: 250 MG, 2X/DAY
     Route: 048
     Dates: start: 20110924
  4. MIRTAZAPINE [Concomitant]
     Dosage: 50 MG, 1X/DAY

REACTIONS (5)
  - FATIGUE [None]
  - ASTHENIA [None]
  - COUGH [None]
  - WEIGHT DECREASED [None]
  - ERUCTATION [None]
